FAERS Safety Report 23924822 (Version 1)
Quarter: 2024Q2

REPORT INFORMATION
  Report Type: Spontaneous
  Country: US (occurrence: US)
  Receive Date: 20240531
  Receipt Date: 20240531
  Transmission Date: 20240716
  Serious: No
  Sender: FDA-Public Use
  Company Number: US-PFIZER INC-202400181095

PATIENT
  Age: 36 Year
  Sex: Female
  Weight: 129.73 kg

DRUGS (3)
  1. DEPO-PROVERA [Suspect]
     Active Substance: MEDROXYPROGESTERONE ACETATE
     Indication: Ovarian disorder
     Dosage: UNK
     Dates: start: 202312
  2. METFORMIN [Concomitant]
     Active Substance: METFORMIN HYDROCHLORIDE
     Indication: Insulin resistance
     Dosage: 1000 MG, 2X/DAY
     Route: 048
  3. TIRZEPATIDE [Concomitant]
     Active Substance: TIRZEPATIDE
     Dosage: INJECT 75UNITS ONCE A WEEK

REACTIONS (3)
  - Menstruation irregular [Recovering/Resolving]
  - Heavy menstrual bleeding [Recovering/Resolving]
  - Off label use [Unknown]
